FAERS Safety Report 8902153 (Version 3)
Quarter: 2012Q4

REPORT INFORMATION
  Report Type: 
  Country: TW (occurrence: TW)
  Receive Date: 20121112
  Receipt Date: 20121213
  Transmission Date: 20130627
  Serious: Yes (Death)
  Sender: FDA-Public Use
  Company Number: TW-ABBOTT-12P-153-1005986-00

PATIENT
  Age: 74 Year
  Sex: Female
  Weight: 54 kg

DRUGS (7)
  1. HUMIRA [Suspect]
     Indication: RHEUMATOID ARTHRITIS
     Route: 058
     Dates: start: 20080105, end: 20121027
  2. MTX [Concomitant]
     Indication: RHEUMATOID ARTHRITIS
     Dosage: 4# Every week
     Route: 048
     Dates: start: 20080105, end: 20121027
  3. PREDNISOLONE [Concomitant]
     Indication: RHEUMATOID ARTHRITIS
     Dosage: 1# Every day
     Route: 048
     Dates: start: 20080105, end: 20121027
  4. SALAZINE [Concomitant]
     Indication: RHEUMATOID ARTHRITIS
     Dosage: 3# every day
     Route: 048
     Dates: start: 20080105, end: 20121027
  5. APROVEL [Concomitant]
     Indication: RHEUMATOID ARTHRITIS
     Dosage: 1# every day
     Route: 048
     Dates: start: 20080105, end: 20121027
  6. CELEBREX [Concomitant]
     Indication: RHEUMATOID ARTHRITIS
     Route: 048
     Dates: start: 20080105, end: 20121027
  7. DEFENSE [Concomitant]
     Indication: RHEUMATOID ARTHRITIS
     Route: 048
     Dates: start: 20080105, end: 20121027

REACTIONS (1)
  - Death [Fatal]
